FAERS Safety Report 18496513 (Version 2)
Quarter: 2020Q4

REPORT INFORMATION
  Report Type: Spontaneous
  Country: US (occurrence: US)
  Receive Date: 20201112
  Receipt Date: 20201210
  Transmission Date: 20210114
  Serious: Yes (Other)
  Sender: FDA-Public Use
  Company Number: US-BAYER-2020-243879

PATIENT
  Age: 26 Year
  Sex: Female

DRUGS (1)
  1. SKYLA [Suspect]
     Active Substance: LEVONORGESTREL
     Indication: CONTRACEPTION
     Dosage: 14 ?G PER DAY CONTIUOUSLY
     Route: 015
     Dates: start: 20200805, end: 2020

REACTIONS (2)
  - Genital haemorrhage [None]
  - Unintentional medical device removal [None]

NARRATIVE: CASE EVENT DATE: 2020
